FAERS Safety Report 8537030-4 (Version None)
Quarter: 2012Q3

REPORT INFORMATION
  Report Type: 
  Country: None (occurrence: None)
  Receive Date: 20120725
  Receipt Date: 20120718
  Transmission Date: 20120928
  Serious: Yes (Other)
  Sender: FDA-Public Use
  Company Number: US-PFIZER INC-2012159650

PATIENT
  Sex: Male
  Weight: 72 kg

DRUGS (7)
  1. LIPITOR [Suspect]
     Indication: BLOOD CHOLESTEROL ABNORMAL
  2. ASPIRIN [Suspect]
     Indication: ANTICOAGULANT THERAPY
     Dosage: 81 MG, DAILY
  3. LIPITOR [Suspect]
     Indication: LOW DENSITY LIPOPROTEIN ABNORMAL
     Dosage: UNK
     Route: 048
     Dates: start: 20100101, end: 20110101
  4. METOPROLOL TARTRATE [Suspect]
     Indication: HYPERTENSION
     Dosage: 50 MG, 2X/DAY
     Dates: start: 20100101, end: 20110101
  5. PLAVIX [Suspect]
     Indication: ANTIPLATELET THERAPY
     Dosage: 75 MG, DAILY
     Dates: start: 20100101, end: 20110101
  6. LISINOPRIL [Suspect]
     Indication: HYPERTENSION
     Dosage: 20 MG, DAILY
     Dates: start: 20100101, end: 20110101
  7. ASPIRIN [Suspect]
     Dosage: 81 MG, 3X/DAY
     Route: 048

REACTIONS (8)
  - MENTAL DISORDER [None]
  - DRUG ADMINISTRATION ERROR [None]
  - MYOCARDIAL INFARCTION [None]
  - PALPITATIONS [None]
  - INJURY [None]
  - INTRACARDIAC THROMBUS [None]
  - THROMBOSIS [None]
  - NIGHTMARE [None]
